FAERS Safety Report 17033706 (Version 3)
Quarter: 2019Q4

REPORT INFORMATION
  Report Type: Spontaneous
  Country: FR (occurrence: FR)
  Receive Date: 20191114
  Receipt Date: 20191218
  Transmission Date: 20200122
  Serious: Yes (Hospitalization)
  Sender: FDA-Public Use
  Company Number: FR-ELI_LILLY_AND_COMPANY-FR201911003774

PATIENT
  Age: 43 Year
  Sex: Female

DRUGS (5)
  1. SPECIAFOLDINE [Concomitant]
     Active Substance: FOLIC ACID
  2. TALTZ [Suspect]
     Active Substance: IXEKIZUMAB
     Indication: ANKYLOSING SPONDYLITIS
     Dosage: 80 MG, UNKNOWN
     Route: 058
     Dates: start: 201812, end: 201903
  3. CELECOXIB. [Concomitant]
     Active Substance: CELECOXIB
  4. METOJECT [Concomitant]
     Active Substance: METHOTREXATE SODIUM
     Indication: ANKYLOSING SPONDYLITIS
     Dosage: 25 MG, WEEKLY (1/W)
     Route: 065
     Dates: start: 2016, end: 201907
  5. TALTZ [Suspect]
     Active Substance: IXEKIZUMAB
     Dosage: 80 MG, EVERY TEN DAYS
     Route: 058
     Dates: start: 201903, end: 201907

REACTIONS (5)
  - Ankylosing spondylitis [Unknown]
  - Dysuria [Unknown]
  - Off label use [Recovered/Resolved]
  - Colitis [Recovering/Resolving]
  - Rectal abscess [Recovering/Resolving]

NARRATIVE: CASE EVENT DATE: 20190328
